FAERS Safety Report 8803687 (Version 2)
Quarter: 2013Q1

REPORT INFORMATION
  Report Type: Spontaneous
  Country: US (occurrence: US)
  Receive Date: 20120924
  Receipt Date: 20130129
  Transmission Date: 20140127
  Serious: No
  Sender: FDA-Public Use
  Company Number: US-009507513-1209USA008577

PATIENT
  Age: 50 Year
  Sex: Female

DRUGS (5)
  1. SAPHRIS [Suspect]
     Indication: BIPOLAR DISORDER
     Dosage: 10 MG, QD
     Route: 060
     Dates: start: 20120912, end: 20120915
  2. PROZAC [Concomitant]
     Dosage: TAKE 1 BY MOUTH DALLY EVERY MORNING,TAKE PRESCRIPTION WITH FOOD
     Route: 048
     Dates: start: 20120912
  3. ATIVAN [Concomitant]
     Dosage: 0.5 MG, TID
     Route: 048
     Dates: start: 20120912
  4. ULTRAM [Concomitant]
     Dosage: UNK, BID
  5. PROZAC [Concomitant]
     Dosage: TAKE 1 BY MOUTH DALLY EVERY MORNING,TAKE PRESCRIPTION WITH FOOD
     Route: 048
     Dates: start: 20120912

REACTIONS (5)
  - Hallucination [Recovered/Resolved]
  - Nightmare [Recovered/Resolved]
  - Headache [Recovered/Resolved]
  - Inappropriate schedule of drug administration [Unknown]
  - Mood swings [Unknown]
